FAERS Safety Report 14777136 (Version 1)
Quarter: 2018Q2

REPORT INFORMATION
  Report Type: Spontaneous
  Country: US (occurrence: US)
  Receive Date: 20180419
  Receipt Date: 20180419
  Transmission Date: 20180711
  Serious: No
  Sender: FDA-Public Use
  Company Number: US-TEVA-751789USA

PATIENT
  Sex: Male

DRUGS (2)
  1. OXYCODONE [Suspect]
     Active Substance: OXYCODONE
     Indication: PAIN
     Route: 065
     Dates: end: 201612
  2. CORGARD [Concomitant]
     Active Substance: NADOLOL

REACTIONS (7)
  - Skin haemorrhage [Unknown]
  - Burning sensation [Unknown]
  - Blister [Unknown]
  - Pruritus [Unknown]
  - Dermatitis herpetiformis [Unknown]
  - Anxiety [Not Recovered/Not Resolved]
  - Adverse event [Unknown]
